FAERS Safety Report 4862581-3 (Version None)
Quarter: 2005Q4

REPORT INFORMATION
  Report Type: 
  Country: None (occurrence: None)
  Receive Date: 20051219
  Receipt Date: 20051219
  Transmission Date: 20060501
  Serious: No
  Sender: FDA-Public Use
  Company Number: None

PATIENT
  Age: 45 Year
  Sex: Male
  Weight: 106.1417 kg

DRUGS (3)
  1. VASOTEC [Suspect]
     Indication: DIABETES MELLITUS
     Dosage: ONE P.O. QDAY
     Route: 048
     Dates: start: 20050920, end: 20051027
  2. VASOTEC [Suspect]
     Indication: HYPERTENSION
     Dosage: ONE P.O. QDAY
     Route: 048
     Dates: start: 20050920, end: 20051027
  3. ATENOLOL [Concomitant]

REACTIONS (5)
  - ALANINE AMINOTRANSFERASE INCREASED [None]
  - ASPARTATE AMINOTRANSFERASE INCREASED [None]
  - BLOOD BILIRUBIN INCREASED [None]
  - BLOOD LACTATE DEHYDROGENASE INCREASED [None]
  - LIVER FUNCTION TEST ABNORMAL [None]
